FAERS Safety Report 21418910 (Version 4)
Quarter: 2023Q1

REPORT INFORMATION
  Report Type: Report from Study
  Country: US (occurrence: US)
  Receive Date: 20221006
  Receipt Date: 20230128
  Transmission Date: 20230418
  Serious: No
  Sender: FDA-Public Use
  Company Number: US-NOVARTISTESTPH-NVSC2022US223511

PATIENT
  Age: 15 Year
  Sex: Male

DRUGS (1)
  1. OMNITROPE [Suspect]
     Active Substance: SOMATROPIN
     Indication: Short stature
     Dosage: 2.5 MG, QD
     Route: 058
     Dates: start: 20220929

REACTIONS (3)
  - Fear of injection [Unknown]
  - Screaming [Unknown]
  - Injection site pain [Unknown]

NARRATIVE: CASE EVENT DATE: 20220930
